FAERS Safety Report 17712268 (Version 1)
Quarter: 2020Q2

REPORT INFORMATION
  Report Type: Spontaneous
  Country: FR (occurrence: FR)
  Receive Date: 20200427
  Receipt Date: 20200427
  Transmission Date: 20200714
  Serious: Yes (Hospitalization)
  Sender: FDA-Public Use
  Company Number: FR-SA-2020SA105529

PATIENT
  Age: 9 Month
  Sex: Female
  Weight: 5.6 kg

DRUGS (1)
  1. LOVENOX [Suspect]
     Active Substance: ENOXAPARIN SODIUM
     Indication: WRONG DOSE
     Dosage: UNK
     Route: 058
     Dates: start: 20200406, end: 20200406

REACTIONS (2)
  - Anti factor X activity increased [Recovered/Resolved]
  - Wrong dose [Unknown]

NARRATIVE: CASE EVENT DATE: 20200406
